FAERS Safety Report 9146613 (Version 4)
Quarter: 2013Q2

REPORT INFORMATION
  Report Type: Spontaneous
  Country: US (occurrence: US)
  Receive Date: 20130307
  Receipt Date: 20130617
  Transmission Date: 20140414
  Serious: Yes (Hospitalization, Congenital Anomaly)
  Sender: FDA-Public Use
  Company Number: US-JNJFOC-20130301894

PATIENT
  Age: 0 Year
  Sex: Male

DRUGS (4)
  1. TOPAMAX [Suspect]
     Indication: FOETAL EXPOSURE DURING PREGNANCY
     Route: 064
     Dates: start: 2005, end: 2007
  2. CLARITIN [Suspect]
     Indication: FOETAL EXPOSURE DURING PREGNANCY
     Route: 064
  3. IMITREX [Suspect]
     Indication: FOETAL EXPOSURE DURING PREGNANCY
     Route: 064
  4. PRENATAL VITAMINS [Concomitant]
     Indication: FOETAL EXPOSURE DURING PREGNANCY
     Route: 064

REACTIONS (15)
  - Hypospadias [Recovering/Resolving]
  - Hermaphroditism [Unknown]
  - Dwarfism [Unknown]
  - Penoscrotal transposition [Not Recovered/Not Resolved]
  - Chordee [Unknown]
  - Phimosis [Unknown]
  - Foetal growth restriction [Unknown]
  - Premature baby [Not Recovered/Not Resolved]
  - Anaemia neonatal [Not Recovered/Not Resolved]
  - Neutropenia neonatal [Not Recovered/Not Resolved]
  - Ophthalmia neonatorum [Recovered/Resolved]
  - Developmental delay [Not Recovered/Not Resolved]
  - Bradycardia [Recovered/Resolved]
  - Hyperbilirubinaemia [Recovered/Resolved]
  - Apnoea [Recovered/Resolved]
